FAERS Safety Report 5339442-9 (Version None)
Quarter: 2007Q2

REPORT INFORMATION
  Report Type: 
  Country: None (occurrence: None)
  Receive Date: 20070404
  Receipt Date: 20060510
  Transmission Date: 20071010
  Serious: Yes (Hospitalization, Other)
  Sender: FDA-Public Use
  Company Number: 2006062335

PATIENT
  Age: 12 Year
  Sex: Male

DRUGS (2)
  1. GEODON [Suspect]
     Indication: ILL-DEFINED DISORDER
     Dosage: 160 MG (80 MG, 2 IN 1 D)
  2. CONCERTA [Suspect]
     Indication: ILL-DEFINED DISORDER

REACTIONS (1)
  - EXTRAPYRAMIDAL DISORDER [None]
